FAERS Safety Report 13855285 (Version 1)
Quarter: 2017Q3

REPORT INFORMATION
  Report Type: Spontaneous
  Country: GB (occurrence: GB)
  Receive Date: 20170810
  Receipt Date: 20170810
  Transmission Date: 20171127
  Serious: Yes (Death, Other)
  Sender: FDA-Public Use
  Company Number: GB-JNJFOC-20160209332

PATIENT

DRUGS (5)
  1. DOXORUBICIN [Suspect]
     Active Substance: DOXORUBICIN
     Indication: DIFFUSE LARGE B-CELL LYMPHOMA
     Route: 042
  2. RITUXIMAB. [Suspect]
     Active Substance: RITUXIMAB
     Indication: DIFFUSE LARGE B-CELL LYMPHOMA
     Route: 065
  3. VINCRISTINE [Suspect]
     Active Substance: VINCRISTINE
     Indication: DIFFUSE LARGE B-CELL LYMPHOMA
     Route: 065
  4. PREDNISOLONE. [Suspect]
     Active Substance: PREDNISOLONE
     Indication: DIFFUSE LARGE B-CELL LYMPHOMA
     Route: 065
  5. CYCLOPHOSPHAMIDE. [Suspect]
     Active Substance: CYCLOPHOSPHAMIDE
     Indication: DIFFUSE LARGE B-CELL LYMPHOMA
     Route: 065

REACTIONS (21)
  - Cardiac disorder [Fatal]
  - Neurotoxicity [Unknown]
  - Diarrhoea [Unknown]
  - Pyrexia [Unknown]
  - Off label use [Unknown]
  - Sepsis [Fatal]
  - Cardiotoxicity [Unknown]
  - Constipation [Unknown]
  - Thrombocytopenia [Unknown]
  - Nausea [Unknown]
  - Infection [Unknown]
  - Product use in unapproved indication [Unknown]
  - Neutropenic sepsis [Fatal]
  - Death [Fatal]
  - Neutropenia [Unknown]
  - Anaemia [Unknown]
  - Renal failure [Fatal]
  - Mucosal inflammation [Unknown]
  - Fatigue [Unknown]
  - Vomiting [Unknown]
  - Bone pain [Unknown]
